FAERS Safety Report 16709060 (Version 1)
Quarter: 2019Q3

REPORT INFORMATION
  Report Type: Spontaneous
  Country: DE (occurrence: DE)
  Receive Date: 20190816
  Receipt Date: 20190816
  Transmission Date: 20191004
  Serious: Yes (Hospitalization)
  Sender: FDA-Public Use
  Company Number: DE-TEVA-2019-DE-1093092

PATIENT
  Age: 50 Year
  Sex: Male

DRUGS (2)
  1. CISPLATIN. [Suspect]
     Active Substance: CISPLATIN
     Dosage: NK MG, MOST RECENTLY ON 11/13/2017
     Route: 065
  2. ETOPOSID [Suspect]
     Active Substance: ETOPOSIDE
     Dosage: NK MG, MOST RECENTLY ON 11/13/2017

REACTIONS (2)
  - Pulmonary embolism [Unknown]
  - Sensory level abnormal [Unknown]
